FAERS Safety Report 7626973-1 (Version None)
Quarter: 2011Q3

REPORT INFORMATION
  Report Type: 
  Country: None (occurrence: None)
  Receive Date: 20110721
  Receipt Date: 20110705
  Transmission Date: 20111222
  Serious: Yes (Other)
  Sender: FDA-Public Use
  Company Number: PHHY2011DK59532

PATIENT
  Age: 53 Year
  Sex: Female

DRUGS (4)
  1. VALDOXAN [Suspect]
     Dosage: 25 MG, UNK
  2. SERTRALINE HYDROCHLORIDE [Suspect]
     Indication: DEPRESSION
     Dosage: 100 MG, UNK
  3. SERTRALINE HYDROCHLORIDE [Suspect]
     Dosage: 50 MG, UNK
  4. ABILIFY [Suspect]
     Indication: DEPRESSION

REACTIONS (4)
  - IMPULSIVE BEHAVIOUR [None]
  - HYPERHIDROSIS [None]
  - TREMOR [None]
  - DISTURBANCE IN ATTENTION [None]
